FAERS Safety Report 10083753 (Version 2)
Quarter: 2014Q2

REPORT INFORMATION
  Report Type: Report from Study
  Country: US (occurrence: US)
  Receive Date: 20140417
  Receipt Date: 20140424
  Transmission Date: 20141212
  Serious: Yes (Other)
  Sender: FDA-Public Use
  Company Number: PHEH2014US007224

PATIENT
  Sex: Male

DRUGS (1)
  1. TOBI [Suspect]
     Indication: CYSTIC FIBROSIS
     Dosage: 300 MG/5 ML BID
     Dates: start: 201301

REACTIONS (4)
  - Pseudomonas infection [Unknown]
  - Cystic fibrosis [Unknown]
  - Lung infection [Unknown]
  - Drug administered to patient of inappropriate age [Unknown]
